FAERS Safety Report 12120112 (Version 2)
Quarter: 2016Q3

REPORT INFORMATION
  Report Type: Spontaneous
  Country: US (occurrence: US)
  Receive Date: 20160226
  Receipt Date: 20160928
  Transmission Date: 20161109
  Serious: Yes (Other)
  Sender: FDA-Public Use
  Company Number: US-ASTRAZENECA-2016SE16374

PATIENT
  Age: 47 Year
  Sex: Female
  Weight: 72.6 kg

DRUGS (6)
  1. LIPITOR [Suspect]
     Active Substance: ATORVASTATIN CALCIUM
     Dosage: GENERIC, 40 MG ONE PILL AT NIGHT
     Route: 065
     Dates: start: 201311
  2. PRAVASTATIN SODIUM. [Suspect]
     Active Substance: PRAVASTATIN SODIUM
     Indication: BLOOD TRIGLYCERIDES INCREASED
     Dosage: 40.0MG UNKNOWN
     Route: 065
     Dates: start: 2014
  3. CRESTOR [Suspect]
     Active Substance: ROSUVASTATIN CALCIUM
     Dosage: 10.0MG UNKNOWN
     Route: 048
  4. PRAVASTATIN SODIUM. [Suspect]
     Active Substance: PRAVASTATIN SODIUM
     Indication: BLOOD CHOLESTEROL INCREASED
     Dosage: 40.0MG UNKNOWN
     Route: 065
     Dates: start: 2014
  5. PRAVASTATIN SODIUM. [Suspect]
     Active Substance: PRAVASTATIN SODIUM
     Indication: BLOOD TRIGLYCERIDES INCREASED
     Dosage: 20.0MG UNKNOWN
     Route: 065
     Dates: start: 201403
  6. PRAVASTATIN SODIUM. [Suspect]
     Active Substance: PRAVASTATIN SODIUM
     Indication: BLOOD CHOLESTEROL INCREASED
     Dosage: 20.0MG UNKNOWN
     Route: 065
     Dates: start: 201403

REACTIONS (21)
  - Muscular weakness [Unknown]
  - Musculoskeletal stiffness [Unknown]
  - Pain [Unknown]
  - Pain in extremity [Unknown]
  - Condition aggravated [Unknown]
  - Musculoskeletal disorder [Unknown]
  - Drug ineffective [Unknown]
  - Skin discolouration [Unknown]
  - Dry mouth [Unknown]
  - Rib fracture [Unknown]
  - Erythema [Unknown]
  - Fall [Unknown]
  - Limb injury [Unknown]
  - Lipids increased [Unknown]
  - Muscle spasms [Unknown]
  - Hepatic enzyme increased [Unknown]
  - Arthralgia [Unknown]
  - Blood cholesterol decreased [Unknown]
  - Asthenia [Unknown]
  - Abdominal distension [Unknown]
  - Paraesthesia [Unknown]
